FAERS Safety Report 6676613-3 (Version None)
Quarter: 2010Q2

REPORT INFORMATION
  Report Type: 
  Country: None (occurrence: None)
  Receive Date: 20100412
  Receipt Date: 20100330
  Transmission Date: 20101027
  Serious: Yes (Death, Other)
  Sender: FDA-Public Use
  Company Number: PHHY2009JP23397

PATIENT
  Sex: Female
  Weight: 55 kg

DRUGS (7)
  1. STI571/CGP57148B T35717+TAB [Suspect]
     Indication: ACUTE LYMPHOCYTIC LEUKAEMIA
     Dosage: 400 MG/DAY
     Route: 048
     Dates: start: 20080806, end: 20080808
  2. STI571/CGP57148B T35717+TAB [Suspect]
     Dosage: 600 MG/DAY
     Route: 048
     Dates: start: 20080809, end: 20080813
  3. ALOSITOL [Concomitant]
     Indication: PROPHYLAXIS
     Dosage: 200 MG, UNK
     Route: 048
     Dates: start: 20080726, end: 20080813
  4. COTRIM [Concomitant]
     Indication: PROPHYLAXIS
     Dosage: 8 DF, UNK
     Route: 048
     Dates: start: 20080729, end: 20080813
  5. ITRIZOLE [Concomitant]
     Indication: PROPHYLAXIS
     Dosage: 200 MG, UNK
     Route: 048
     Dates: start: 20080730, end: 20080813
  6. ORGARAN [Concomitant]
     Dosage: 2500 IU, UNK
     Route: 042
     Dates: start: 20080726, end: 20080808
  7. CEFMETAZON [Concomitant]
     Dosage: 4 G, UNK
     Route: 041
     Dates: start: 20080726, end: 20090813

REACTIONS (15)
  - ALANINE AMINOTRANSFERASE INCREASED [None]
  - ASPARTATE AMINOTRANSFERASE INCREASED [None]
  - BLOOD ALKALINE PHOSPHATASE INCREASED [None]
  - BLOOD AMYLASE INCREASED [None]
  - BLOOD BILIRUBIN INCREASED [None]
  - BLOOD CREATINE PHOSPHOKINASE INCREASED [None]
  - BLOOD LACTATE DEHYDROGENASE INCREASED [None]
  - BLOOD UREA INCREASED [None]
  - BLOOD URIC ACID INCREASED [None]
  - ILEUS PARALYTIC [None]
  - MALIGNANT NEOPLASM PROGRESSION [None]
  - METASTASES TO CENTRAL NERVOUS SYSTEM [None]
  - RENAL FAILURE ACUTE [None]
  - SEPTIC SHOCK [None]
  - SUBARACHNOID HAEMORRHAGE [None]
